FAERS Safety Report 5368406-4 (Version None)
Quarter: 2007Q2

REPORT INFORMATION
  Report Type: 
  Country: None (occurrence: None)
  Receive Date: 20070625
  Receipt Date: 20070622
  Transmission Date: 20071010
  Serious: Yes (Death)
  Sender: FDA-Public Use
  Company Number: FR-BAYER-200610761BFR

PATIENT
  Age: 68 Year
  Sex: Male
  Weight: 90 kg

DRUGS (14)
  1. ACARBOSE [Suspect]
     Indication: UNEVALUABLE EVENT
     Route: 048
     Dates: end: 20060802
  2. DIFFU K [Suspect]
     Indication: UNEVALUABLE EVENT
     Route: 048
     Dates: end: 20060802
  3. TRIATEC [Suspect]
     Indication: UNEVALUABLE EVENT
     Route: 048
     Dates: end: 20060802
  4. PRAVASTATIN [Suspect]
     Indication: UNEVALUABLE EVENT
     Route: 048
     Dates: end: 20060802
  5. VFEND [Suspect]
     Indication: UNEVALUABLE EVENT
     Dosage: TOTAL DAILY DOSE: 200 MG
     Route: 048
     Dates: start: 20060721, end: 20060801
  6. TARCEVA [Suspect]
     Indication: UNEVALUABLE EVENT
     Dosage: TOTAL DAILY DOSE: 150 MG
     Route: 048
     Dates: start: 20060729, end: 20060730
  7. ISOPTIN [Concomitant]
     Indication: UNEVALUABLE EVENT
     Route: 065
     Dates: start: 20060802
  8. ALDACTONE [Concomitant]
     Indication: UNEVALUABLE EVENT
     Route: 065
     Dates: end: 20060802
  9. LASIX [Concomitant]
     Indication: UNEVALUABLE EVENT
     Route: 065
     Dates: end: 20060802
  10. ALLOPURINOL [Concomitant]
     Indication: UNEVALUABLE EVENT
     Route: 065
     Dates: end: 20060802
  11. ADANCOR [Concomitant]
     Indication: UNEVALUABLE EVENT
     Route: 065
     Dates: end: 20060802
  12. NITRODERM [Concomitant]
     Indication: UNEVALUABLE EVENT
     Route: 062
     Dates: end: 20060802
  13. BRICANYL [Concomitant]
     Indication: UNEVALUABLE EVENT
     Route: 065
     Dates: end: 20060802
  14. ATROVENT [Concomitant]
     Indication: UNEVALUABLE EVENT
     Route: 065
     Dates: end: 20060802

REACTIONS (1)
  - DEATH [None]
